FAERS Safety Report 25204060 (Version 1)
Quarter: 2025Q2

REPORT INFORMATION
  Report Type: Spontaneous
  Country: FR (occurrence: FR)
  Receive Date: 20250416
  Receipt Date: 20250416
  Transmission Date: 20250716
  Serious: Yes (Other)
  Sender: ABBVIE
  Company Number: FR-ABBVIE-6235546

PATIENT
  Age: 72 Year
  Sex: Female

DRUGS (2)
  1. DEPAKOTE [Suspect]
     Active Substance: DIVALPROEX SODIUM
     Indication: Bipolar disorder
     Dosage: 250 MG
     Route: 048
     Dates: start: 2006
  2. APIXABAN [Suspect]
     Active Substance: APIXABAN
     Indication: Cardiac valve prosthesis user
     Route: 048
     Dates: start: 202412

REACTIONS (1)
  - International normalised ratio fluctuation [Recovered/Resolved]

NARRATIVE: CASE EVENT DATE: 20241201
